FAERS Safety Report 23324906 (Version 1)
Quarter: 2023Q4

REPORT INFORMATION
  Report Type: Spontaneous
  Country: US (occurrence: US)
  Receive Date: 20231221
  Receipt Date: 20231221
  Transmission Date: 20240109
  Serious: No
  Sender: FDA-Public Use
  Company Number: US-STRIDES ARCOLAB LIMITED-2023SP005336

PATIENT
  Age: 33 Year
  Sex: Male

DRUGS (24)
  1. HALOPERIDOL [Suspect]
     Active Substance: HALOPERIDOL
     Indication: Psychotic disorder
     Dosage: UNK, INJECTIONS (REFUSED ORAL HALOPERIDOL 5 MG)
     Route: 030
  2. HALOPERIDOL [Suspect]
     Active Substance: HALOPERIDOL
     Dosage: UNK, TITRATED TO A DOSE OF 10 MG TWICE DAILY
     Route: 048
  3. HALOPERIDOL [Suspect]
     Active Substance: HALOPERIDOL
     Dosage: 30 MILLIGRAM DAILY
     Route: 065
  4. LORAZEPAM [Suspect]
     Active Substance: LORAZEPAM
     Indication: Psychotic disorder
     Dosage: UNK, INJECTION (REFUSED ORAL LORAZEPAM 2 MG)
     Route: 030
  5. DIPHENHYDRAMINE [Suspect]
     Active Substance: DIPHENHYDRAMINE
     Indication: Psychotic disorder
     Dosage: UNK, INJECTION (REFUSED ORAL DIPHENHYDRAMINE 50 MG/(DIPHENHYDRAMINE 25 MG NIGHTLY; HOWEVER, THE PATI
     Route: 030
  6. CHLORPROMAZINE [Suspect]
     Active Substance: CHLORPROMAZINE
     Indication: Psychotic disorder
     Dosage: 150 MILLIGRAM (DAILY)
     Route: 048
  7. CHLORPROMAZINE [Suspect]
     Active Substance: CHLORPROMAZINE
     Dosage: UNK (TITRATED UP TO 300 MG DAILY)
     Route: 065
  8. RISPERDAL [Suspect]
     Active Substance: RISPERIDONE
     Indication: Psychotic disorder
     Dosage: UNK (PATIENT WAS OFFERED ORAL RISPERIDONE 2 MG DAILY)
     Route: 048
  9. VALPROIC ACID [Concomitant]
     Active Substance: VALPROIC ACID
     Indication: Schizoaffective disorder bipolar type
     Dosage: 1000 MILLIGRAM DAILY
     Route: 065
  10. BUSPIRONE [Concomitant]
     Active Substance: BUSPIRONE HYDROCHLORIDE
     Indication: Generalised anxiety disorder
     Dosage: 15 MILLIGRAM, TID
     Route: 065
  11. BUSPIRONE [Concomitant]
     Active Substance: BUSPIRONE HYDROCHLORIDE
     Dosage: UNK, THE PATIENT FREQUENTLY NASALLY INGESTED
     Route: 045
  12. BUSPIRONE [Concomitant]
     Active Substance: BUSPIRONE HYDROCHLORIDE
     Dosage: 5 MILLIGRAM, TID
     Route: 065
  13. BUSPIRONE [Concomitant]
     Active Substance: BUSPIRONE HYDROCHLORIDE
     Dosage: UNK, RESTARTED
     Route: 065
  14. BUSPIRONE [Concomitant]
     Active Substance: BUSPIRONE HYDROCHLORIDE
     Dosage: UNK, OVER THE COURSE OF 10 DAYS THAT THE PATIENT RECEIVED BUSPIRONE
     Route: 065
  15. BUSPIRONE [Concomitant]
     Active Substance: BUSPIRONE HYDROCHLORIDE
     Dosage: UNK, THE PATIENT HAD BEEN FOUND TO BE NASALLY INGESTING BUSPIRONE AGAIN.
     Route: 045
  16. TRAZODONE [Concomitant]
     Active Substance: TRAZODONE HYDROCHLORIDE
     Indication: Generalised anxiety disorder
     Dosage: 50 MILLIGRAM DAILY
     Route: 065
  17. GABAPENTIN [Concomitant]
     Active Substance: GABAPENTIN
     Indication: Generalised anxiety disorder
     Dosage: 900 MILLIGRAM DAILY
     Route: 065
  18. GABAPENTIN [Concomitant]
     Active Substance: GABAPENTIN
     Indication: Schizoaffective disorder bipolar type
  19. QUETIAPINE [Concomitant]
     Active Substance: QUETIAPINE
     Indication: Schizoaffective disorder bipolar type
     Dosage: 300 MILLIGRAM DAILY
     Route: 065
  20. QUETIAPINE [Concomitant]
     Active Substance: QUETIAPINE
     Dosage: 300 MILLIGRAM, QUETIAPINE XR (EXTENDED RELEASE)
     Route: 065
  21. QUETIAPINE [Concomitant]
     Active Substance: QUETIAPINE
     Dosage: UNK, QUETIAPINE XR WAS TITRATED UP TO 800 MG AND THEN DISCONTINUED DUE TO A LACK OF THERAPEUTIC RESP
     Route: 065
  22. PALIPERIDONE PALMITATE [Concomitant]
     Active Substance: PALIPERIDONE PALMITATE
     Indication: Schizoaffective disorder bipolar type
     Dosage: 156 MILLIGRAM, EVERY 4 WEEKS
     Route: 030
  23. PALIPERIDONE PALMITATE [Concomitant]
     Active Substance: PALIPERIDONE PALMITATE
     Dosage: 234 MILLIGRAM, LONG-ACTING INJECTABLE
     Route: 065
  24. PALIPERIDONE PALMITATE [Concomitant]
     Active Substance: PALIPERIDONE PALMITATE
     Dosage: 234 MILLIGRAM, EVERY 4 WEEKS
     Route: 030

REACTIONS (1)
  - Treatment noncompliance [Unknown]
